FAERS Safety Report 18623622 (Version 1)
Quarter: 2020Q4

REPORT INFORMATION
  Report Type: Spontaneous
  Country: FR (occurrence: FR)
  Receive Date: 20201216
  Receipt Date: 20201216
  Transmission Date: 20210114
  Serious: Yes (Hospitalization, Other)
  Sender: FDA-Public Use
  Company Number: FR-MYLANLABS-2020M1103327

PATIENT
  Age: 15 Year
  Sex: Male
  Weight: 57 kg

DRUGS (1)
  1. PARACETAMOL [Suspect]
     Active Substance: ACETAMINOPHEN
     Indication: PRODUCT USED FOR UNKNOWN INDICATION
     Dosage: 12 GRAM, TOTAL
     Route: 048
     Dates: start: 20201105, end: 20201105

REACTIONS (4)
  - Analgesic drug level increased [Recovered/Resolved]
  - Overdose [Unknown]
  - Poisoning deliberate [Unknown]
  - Liver injury [Recovered/Resolved]

NARRATIVE: CASE EVENT DATE: 20201105
